FAERS Safety Report 10231151 (Version 2)
Quarter: 2014Q4

REPORT INFORMATION
  Report Type: Spontaneous
  Country: US (occurrence: US)
  Receive Date: 20140611
  Receipt Date: 20141014
  Transmission Date: 20150528
  Serious: Yes (Other)
  Sender: FDA-Public Use
  Company Number: US-BAYER-2014-087341

PATIENT
  Age: 30 Year
  Sex: Female
  Weight: 75.28 kg

DRUGS (4)
  1. YASMIN [Suspect]
     Active Substance: DROSPIRENONE\ETHINYL ESTRADIOL
     Dosage: UNK
     Route: 048
     Dates: start: 200206
  2. HUMIBID LA [Concomitant]
     Dosage: 600 MG, BID
  3. FLEXERIL [Concomitant]
     Active Substance: CYCLOBENZAPRINE HYDROCHLORIDE
     Dosage: 10 MG, PRN
  4. PHENERGAN [Concomitant]
     Active Substance: PROMETHAZINE HYDROCHLORIDE
     Dosage: 25 MG, 4-6 HOURSPRN

REACTIONS (4)
  - Renal infarct [None]
  - Pain [None]
  - Renal vascular thrombosis [None]
  - Injury [None]

NARRATIVE: CASE EVENT DATE: 2003
